FAERS Safety Report 6179054-0 (Version None)
Quarter: 2009Q2

REPORT INFORMATION
  Report Type: 
  Country: None (occurrence: None)
  Receive Date: 20090505
  Receipt Date: 20090423
  Transmission Date: 20091009
  Serious: Yes (Hospitalization, Other)
  Sender: FDA-Public Use
  Company Number: PHHY2009JP14366

PATIENT
  Age: 58 Year
  Sex: Male

DRUGS (10)
  1. CYCLOSPORINE [Suspect]
     Indication: BONE MARROW TRANSPLANT
  2. CYCLOSPORINE [Suspect]
     Indication: PROPHYLAXIS AGAINST GRAFT VERSUS HOST DISEASE
  3. METHOTREXATE [Suspect]
     Indication: BONE MARROW TRANSPLANT
  4. PREDNISOLONE [Concomitant]
     Indication: GRAFT VERSUS HOST DISEASE
     Dosage: 1 MG/KG/DAY
  5. PREDNISOLONE [Concomitant]
     Dosage: TAPERED TO 15 MG/DAY
  6. PREDNISOLONE [Concomitant]
     Dosage: 60 MG/DAY
  7. STEROIDS NOS [Concomitant]
     Indication: GRAFT VERSUS HOST DISEASE
  8. FLUDARABINE PHOSPHATE [Concomitant]
     Indication: BONE MARROW TRANSPLANT
     Dosage: 30 MG/M^2/DAY
  9. BUSULFAN [Concomitant]
     Indication: BONE MARROW TRANSPLANT
     Dosage: 0.8 MG/KG X 4/DAY
     Route: 042
  10. IRRADIATION [Concomitant]
     Indication: BONE MARROW TRANSPLANT
     Dosage: 4 GY

REACTIONS (15)
  - ACUTE GRAFT VERSUS HOST DISEASE [None]
  - CHEST X-RAY ABNORMAL [None]
  - COUGH [None]
  - DIARRHOEA [None]
  - EOSINOPHILIC PNEUMONIA ACUTE [None]
  - HEPATIC ENZYME INCREASED [None]
  - INFLAMMATION [None]
  - INTERSTITIAL LUNG DISEASE [None]
  - LICHENOID KERATOSIS [None]
  - PO2 DECREASED [None]
  - PULMONARY FUNCTION TEST ABNORMAL [None]
  - PYREXIA [None]
  - RASH [None]
  - RENAL IMPAIRMENT [None]
  - RESPIRATORY DISTRESS [None]
